FAERS Safety Report 25202972 (Version 3)
Quarter: 2025Q2

REPORT INFORMATION
  Report Type: Spontaneous
  Country: BD (occurrence: BD)
  Receive Date: 20250416
  Receipt Date: 20250424
  Transmission Date: 20250717
  Serious: Yes (Life-Threatening, Hospitalization)
  Sender: BAYER HEALTHCARE LLC
  Company Number: BD-BAYER-2025A050672

PATIENT
  Age: 40 Year
  Sex: Male

DRUGS (5)
  1. NAPROXEN SODIUM [Interacting]
     Active Substance: NAPROXEN SODIUM
     Indication: Seronegative arthritis
     Dosage: 500 MG, QD
  2. NAPROXEN SODIUM [Interacting]
     Active Substance: NAPROXEN SODIUM
     Indication: Seronegative arthritis
  3. METHOTREXATE [Interacting]
     Active Substance: METHOTREXATE
     Indication: Seronegative arthritis
  4. METHOTREXATE [Interacting]
     Active Substance: METHOTREXATE
     Indication: Seronegative arthritis
     Dosage: 10 MG
  5. PREDNISOLONE [Concomitant]
     Active Substance: PREDNISOLONE
     Dosage: 20 MG, QD

REACTIONS (11)
  - Pancytopenia [Recovering/Resolving]
  - Mucosal ulceration [Recovering/Resolving]
  - Genital erosion [Recovering/Resolving]
  - Rash pustular [Recovering/Resolving]
  - Blister [Recovering/Resolving]
  - Erythema [Recovering/Resolving]
  - Dysuria [Recovering/Resolving]
  - Inappropriate schedule of product administration [Recovering/Resolving]
  - Oral candidiasis [Recovering/Resolving]
  - Agranulocytosis [Recovering/Resolving]
  - Mouth ulceration [Recovering/Resolving]
